FAERS Safety Report 13910447 (Version 1)
Quarter: 2017Q3

REPORT INFORMATION
  Report Type: Spontaneous
  Country: US (occurrence: None)
  Receive Date: 20170822
  Receipt Date: 20170822
  Transmission Date: 20171127
  Serious: Yes (Disabling)
  Sender: FDA-Public Use
  Company Number: None

PATIENT
  Age: 53 Year
  Sex: Female
  Weight: 85.28 kg

DRUGS (2)
  1. VICTOZA [Suspect]
     Active Substance: LIRAGLUTIDE
     Indication: TYPE 2 DIABETES MELLITUS
     Dosage: 0.6 OR 1.2 ONCE A DAY INJECTION
     Route: 058
     Dates: start: 20170705, end: 20170723
  2. LOSARTAN. [Concomitant]
     Active Substance: LOSARTAN

REACTIONS (6)
  - Headache [None]
  - Malaise [None]
  - Vision blurred [None]
  - Alopecia [None]
  - Decreased appetite [None]
  - Impaired work ability [None]

NARRATIVE: CASE EVENT DATE: 20170716
